FAERS Safety Report 6528597-6 (Version None)
Quarter: 2009Q4

REPORT INFORMATION
  Report Type: 
  Country: None (occurrence: None)
  Receive Date: 20091224
  Receipt Date: 20091215
  Transmission Date: 20100525
  Serious: Yes (Hospitalization)
  Sender: FDA-Public Use
  Company Number: 2009SP041684

PATIENT
  Age: 69 Year
  Sex: Male

DRUGS (1)
  1. MIRTAZAPINE [Suspect]
     Indication: DEPRESSION
     Dosage: 67.5 MG; QD
     Dates: start: 20090701, end: 20091001

REACTIONS (3)
  - CONVULSION [None]
  - RHABDOMYOLYSIS [None]
  - SEROTONIN SYNDROME [None]
